FAERS Safety Report 6089349-7 (Version None)
Quarter: 2009Q1

REPORT INFORMATION
  Report Type: 
  Country: None (occurrence: None)
  Receive Date: 20090224
  Receipt Date: 20090218
  Transmission Date: 20090719
  Serious: Yes (Death, Other)
  Sender: FDA-Public Use
  Company Number: PHHY2009JP06109

PATIENT
  Age: 59 Year
  Sex: Male

DRUGS (4)
  1. CYCLOSPORINE [Suspect]
     Indication: RENAL TRANSPLANT
  2. PROGRAF [Suspect]
     Indication: RENAL TRANSPLANT
  3. PREDONINE [Suspect]
     Indication: RENAL TRANSPLANT
  4. BREDININ [Suspect]
     Indication: RENAL TRANSPLANT

REACTIONS (3)
  - DIVERTICULAR PERFORATION [None]
  - DUODENAL ULCER PERFORATION [None]
  - HEPATIC FUNCTION ABNORMAL [None]
